FAERS Safety Report 20339883 (Version 2)
Quarter: 2022Q4

REPORT INFORMATION
  Report Type: Report from Study
  Country: US (occurrence: US)
  Receive Date: 20220117
  Receipt Date: 20221108
  Transmission Date: 20230112
  Serious: Yes (Hospitalization, Disabling, Other)
  Sender: FDA-Public Use
  Company Number: US-SA-2019SA337433

PATIENT
  Age: 51 Year
  Sex: Female

DRUGS (7)
  1. TERIFLUNOMIDE [Suspect]
     Active Substance: TERIFLUNOMIDE
     Indication: Multiple sclerosis
     Dosage: 14 MG, QD
     Route: 048
     Dates: start: 20180905
  2. PREDNISONE [Concomitant]
     Active Substance: PREDNISONE
  3. XELJANZ [Concomitant]
     Active Substance: TOFACITINIB CITRATE
  4. GLIMEPIRIDE [Concomitant]
     Active Substance: GLIMEPIRIDE
  5. LISINOPRIL [Concomitant]
     Active Substance: LISINOPRIL
  6. METFORMIN [Concomitant]
     Active Substance: METFORMIN HYDROCHLORIDE
  7. METOPROLOL [Concomitant]
     Active Substance: METOPROLOL

REACTIONS (16)
  - Angina unstable [Not Recovered/Not Resolved]
  - Disability [Not Recovered/Not Resolved]
  - Muscle spasms [Recovered/Resolved]
  - Gait disturbance [Not Recovered/Not Resolved]
  - Dysstasia [Not Recovered/Not Resolved]
  - Dehydration [Not Recovered/Not Resolved]
  - Eating disorder [Not Recovered/Not Resolved]
  - Food poisoning [Not Recovered/Not Resolved]
  - Illness [Not Recovered/Not Resolved]
  - COVID-19 [Not Recovered/Not Resolved]
  - Pain in extremity [Not Recovered/Not Resolved]
  - COVID-19 [Recovered/Resolved]
  - Limb discomfort [Not Recovered/Not Resolved]
  - Asthenia [Not Recovered/Not Resolved]
  - Pain [Not Recovered/Not Resolved]
  - Lung disorder [Unknown]

NARRATIVE: CASE EVENT DATE: 20191129
